FAERS Safety Report 8225232-6 (Version None)
Quarter: 2012Q1

REPORT INFORMATION
  Report Type: 
  Country: None (occurrence: None)
  Receive Date: 20120321
  Receipt Date: 20120309
  Transmission Date: 20120608
  Serious: Yes (Hospitalization)
  Sender: FDA-Public Use
  Company Number: CN-BRISTOL-MYERS SQUIBB COMPANY-16458762

PATIENT
  Age: 29 Year
  Sex: Male

DRUGS (1)
  1. ABILIFY [Suspect]
     Indication: DYSTHYMIC DISORDER
     Route: 048
     Dates: start: 20120208, end: 20120215

REACTIONS (1)
  - UPPER GASTROINTESTINAL HAEMORRHAGE [None]
